FAERS Safety Report 9277458 (Version 3)
Quarter: 2014Q2

REPORT INFORMATION
  Report Type: Spontaneous
  Country: US (occurrence: US)
  Receive Date: 20130508
  Receipt Date: 20140409
  Transmission Date: 20141212
  Serious: Yes (Hospitalization)
  Sender: FDA-Public Use
  Company Number: US-BIOGENIDEC-2013BI039550

PATIENT
  Age: 45 Year
  Sex: Female

DRUGS (2)
  1. TYSABRI [Suspect]
     Indication: MULTIPLE SCLEROSIS
     Route: 042
     Dates: start: 20130311
  2. TYSABRI [Suspect]
     Indication: MULTIPLE SCLEROSIS

REACTIONS (5)
  - Transient ischaemic attack [Recovered/Resolved]
  - Loss of consciousness [Recovered/Resolved]
  - Paraesthesia [Unknown]
  - Band sensation [Unknown]
  - Abnormal behaviour [Recovered/Resolved]
